FAERS Safety Report 16886829 (Version 1)
Quarter: 2019Q4

REPORT INFORMATION
  Report Type: Spontaneous
  Country: JP (occurrence: JP)
  Receive Date: 20191004
  Receipt Date: 20191004
  Transmission Date: 20200122
  Serious: Yes (Hospitalization)
  Sender: FDA-Public Use
  Company Number: JP-TAIHO ONCOLOGY  INC-JPTT190214

PATIENT
  Age: 70 Year
  Sex: Male

DRUGS (2)
  1. ANTIDIABETIC AGENTS [Concomitant]
     Active Substance: UNSPECIFIED INGREDIENT
     Indication: FULMINANT TYPE 1 DIABETES MELLITUS
     Dosage: DETAILS NOT REPORTED
     Route: 042
  2. LONSURF [Suspect]
     Active Substance: TIPIRACIL HYDROCHLORIDE\TRIFLURIDINE
     Indication: GASTRIC CANCER
     Dosage: DETAILS NOT REPORTED; 6 DOSES ADMINISTERED
     Route: 048
     Dates: start: 20190913, end: 20190919

REACTIONS (1)
  - Ileus [Recovered/Resolved]

NARRATIVE: CASE EVENT DATE: 20190919
